FAERS Safety Report 4965971-3 (Version None)
Quarter: 2006Q2

REPORT INFORMATION
  Report Type: 
  Country: None (occurrence: None)
  Receive Date: 20060403
  Receipt Date: 20060321
  Transmission Date: 20061013
  Serious: Yes (Hospitalization)
  Sender: FDA-Public Use
  Company Number: 2006040472

PATIENT
  Age: 79 Year
  Sex: Male

DRUGS (11)
  1. DELTACORTRIL [Suspect]
     Indication: ILL-DEFINED DISORDER
     Dosage: 15 MG
  2. WARFARIN SODIUM [Suspect]
     Indication: ILL-DEFINED DISORDER
     Dates: start: 20060208
  3. DICLOFENAC SODIUM [Suspect]
     Indication: ILL-DEFINED DISORDER
     Dosage: 50 MG
  4. ASPIRIN [Suspect]
     Indication: ILL-DEFINED DISORDER
     Dosage: 600 MG, ORAL
     Route: 048
     Dates: start: 20060210, end: 20060213
  5. ENBREL [Suspect]
     Indication: ILL-DEFINED DISORDER
     Dosage: 50 MG, SUBCUTANEOUS
     Route: 058
     Dates: end: 20060128
  6. NEXIUM [Concomitant]
  7. ARAVA [Concomitant]
  8. CALCICHEW-D3 (CALCIUM CARBONATE, COLECALCIFEROL) [Concomitant]
  9. FOSAMAX [Concomitant]
  10. DILTIAZEM HYDROCHLORIDE [Concomitant]
  11. FUROSEMIDE [Concomitant]

REACTIONS (2)
  - GASTROINTESTINAL HAEMORRHAGE [None]
  - HYPOTENSION [None]
